FAERS Safety Report 6100649-4 (Version None)
Quarter: 2009Q1

REPORT INFORMATION
  Report Type: 
  Country: None (occurrence: None)
  Receive Date: 20090227
  Receipt Date: 20090227
  Transmission Date: 20090719
  Serious: No
  Sender: FDA-Public Use
  Company Number: None

PATIENT
  Sex: Female
  Weight: 170.0989 kg

DRUGS (5)
  1. LEVOXYL [Suspect]
  2. LEVOTHYROXINE SODIUM [Suspect]
  3. . [Concomitant]
  4. SYNTHROID [Concomitant]
  5. LEVETHROID [Concomitant]

REACTIONS (3)
  - DYSPNOEA [None]
  - LACRIMATION INCREASED [None]
  - MUSCULOSKELETAL STIFFNESS [None]
